FAERS Safety Report 9200978 (Version 1)
Quarter: 2013Q2

REPORT INFORMATION
  Report Type: Spontaneous
  Country: GB (occurrence: GB)
  Receive Date: 20130401
  Receipt Date: 20130401
  Transmission Date: 20140414
  Serious: Yes (Hospitalization)
  Sender: FDA-Public Use
  Company Number: GB-JNJFOC-20130315211

PATIENT
  Age: 81 Year
  Sex: Female
  Weight: 73 kg

DRUGS (10)
  1. XARELTO [Suspect]
     Indication: PRODUCT USED FOR UNKNOWN INDICATION
     Route: 048
     Dates: start: 20120711, end: 20130216
  2. CALCICHEW [Concomitant]
     Route: 065
  3. DIGOXIN [Concomitant]
     Route: 065
  4. TIOTROPIUM BROMIDE [Concomitant]
     Route: 065
  5. OMEPRAZOLE [Concomitant]
     Route: 065
  6. RAMIPRIL [Concomitant]
     Route: 065
  7. SALMETEROL [Concomitant]
     Route: 065
  8. SPIRONOLACTON [Concomitant]
     Route: 065
  9. BISOPROLOL [Concomitant]
     Route: 065
  10. FUROSEMIDE [Concomitant]
     Route: 065

REACTIONS (2)
  - Intestinal ulcer [Recovered/Resolved]
  - Haematemesis [Unknown]
